FAERS Safety Report 6693366-3 (Version None)
Quarter: 2010Q2

REPORT INFORMATION
  Report Type: 
  Country: None (occurrence: None)
  Receive Date: 20100420
  Receipt Date: 20100405
  Transmission Date: 20101027
  Serious: Yes (Other)
  Sender: FDA-Public Use
  Company Number: 2010SP019854

PATIENT
  Age: 41 Year
  Sex: Female
  Weight: 59.4212 kg

DRUGS (4)
  1. NUVARING [Suspect]
     Indication: DRUG USE FOR UNKNOWN INDICATION
     Dates: start: 20100402
  2. KLONOPIN [Concomitant]
  3. OXYCODONE [Concomitant]
  4. CELEBRATE MULTIVITAMIN [Concomitant]

REACTIONS (9)
  - ABDOMINAL DISTENSION [None]
  - ABDOMINAL PAIN [None]
  - BLISTER [None]
  - EYE SWELLING [None]
  - HEADACHE [None]
  - OEDEMA MOUTH [None]
  - PYREXIA [None]
  - VAGINAL SWELLING [None]
  - VOMITING [None]
